FAERS Safety Report 9784445 (Version 1)
Quarter: 2013Q4

REPORT INFORMATION
  Report Type: Report from Study
  Country: US (occurrence: US)
  Receive Date: 20131226
  Receipt Date: 20131226
  Transmission Date: 20140711
  Serious: Yes (Other)
  Sender: FDA-Public Use
  Company Number: US-BAXTER-2013BAX051844

PATIENT
  Age: 74 Year
  Sex: Female

DRUGS (2)
  1. GAMMAGARD LIQUID [Suspect]
     Indication: PRODUCT USED FOR UNKNOWN INDICATION
     Route: 042
     Dates: start: 20131216
  2. GAMMAGARD LIQUID [Suspect]
     Route: 065

REACTIONS (3)
  - Gastrointestinal infection [Unknown]
  - Bronchitis [Unknown]
  - Hypotension [Unknown]
